FAERS Safety Report 8160288-0 (Version None)
Quarter: 2012Q1

REPORT INFORMATION
  Report Type: 
  Country: None (occurrence: None)
  Receive Date: 20120223
  Receipt Date: 20120223
  Transmission Date: 20120608
  Serious: Yes (Life-Threatening, Hospitalization)
  Sender: FDA-Public Use
  Company Number: None

PATIENT
  Age: 8 Year
  Sex: Male
  Weight: 57 kg

DRUGS (1)
  1. ONFI [Suspect]

REACTIONS (1)
  - TOXIC EPIDERMAL NECROLYSIS [None]
